FAERS Safety Report 5658275-7 (Version None)
Quarter: 2008Q1

REPORT INFORMATION
  Report Type: 
  Country: None (occurrence: None)
  Receive Date: 20080310
  Receipt Date: 20071016
  Transmission Date: 20080703
  Serious: No
  Sender: FDA-Public Use
  Company Number: US-BAYER-200710262BCC

PATIENT
  Age: 77 Year
  Sex: Male
  Weight: 88 kg

DRUGS (5)
  1. ALEVE [Suspect]
     Indication: ARTHRALGIA
     Dosage: AS USED: 440/440/220 MG  UNIT DOSE: 220 MG
     Route: 048
     Dates: start: 20070104
  2. CAPTOPRIL [Concomitant]
  3. PACERONE [Concomitant]
  4. TOPROL [Concomitant]
  5. ASPIRIN [Concomitant]
     Route: 048

REACTIONS (1)
  - ARTHRALGIA [None]
